FAERS Safety Report 12095394 (Version 1)
Quarter: 2016Q1

REPORT INFORMATION
  Report Type: Spontaneous
  Country: US (occurrence: US)
  Receive Date: 20160219
  Receipt Date: 20160219
  Transmission Date: 20160526
  Serious: Yes (Other)
  Sender: FDA-Public Use
  Company Number: PHHY2016US019873

PATIENT
  Age: 75 Year
  Sex: Female

DRUGS (4)
  1. DIGOXIN. [Interacting]
     Active Substance: DIGOXIN
     Indication: HYPERTENSION
     Dosage: 0.125 MG, QD
     Route: 065
  2. LASIX [Suspect]
     Active Substance: FUROSEMIDE
     Indication: HYPERTENSION
     Dosage: 40 MG, QD
     Route: 065
  3. LISINOPRIL. [Suspect]
     Active Substance: LISINOPRIL
     Indication: HYPERTENSION
     Dosage: 20 MG, QD
     Route: 065
  4. ALDACTONE [Interacting]
     Active Substance: SPIRONOLACTONE
     Indication: HYPERTENSION
     Dosage: 25 MG, QD
     Route: 065

REACTIONS (13)
  - Lethargy [Unknown]
  - Renal failure [Unknown]
  - Mitral valve incompetence [Unknown]
  - Atrioventricular block [Unknown]
  - Hypocalcaemia [Unknown]
  - Confusional state [Recovered/Resolved]
  - Dizziness [Unknown]
  - Toxicity to various agents [Unknown]
  - Cardioactive drug level increased [Unknown]
  - Venous pressure jugular increased [Unknown]
  - Drug interaction [Unknown]
  - Hyperkalaemia [Unknown]
  - Rales [Unknown]
